FAERS Safety Report 20018793 (Version 1)
Quarter: 2021Q4

REPORT INFORMATION
  Report Type: Spontaneous
  Country: JP (occurrence: JP)
  Receive Date: 20211101
  Receipt Date: 20211101
  Transmission Date: 20220303
  Serious: Yes (Hospitalization)
  Sender: FDA-Public Use
  Company Number: JP-ELI_LILLY_AND_COMPANY-JP202109003720

PATIENT
  Age: 38 Year
  Sex: Male

DRUGS (2)
  1. TALTZ [Suspect]
     Active Substance: IXEKIZUMAB
     Indication: Psoriasis
     Dosage: 80 MG, EVERY 4 WEEKS
     Route: 058
     Dates: start: 20181217, end: 202008
  2. INFLIXIMAB [Concomitant]
     Active Substance: INFLIXIMAB
     Indication: Psoriasis
     Dosage: 370 MG
     Dates: start: 20201119, end: 20201203

REACTIONS (1)
  - Cellulitis [Recovering/Resolving]

NARRATIVE: CASE EVENT DATE: 20201108
